FAERS Safety Report 7313590-6 (Version None)
Quarter: 2011Q1

REPORT INFORMATION
  Report Type: 
  Country: None (occurrence: None)
  Receive Date: 20110225
  Receipt Date: 20110214
  Transmission Date: 20110831
  Serious: Yes (Other)
  Sender: FDA-Public Use
  Company Number: US-SOLVAY-00211000142

PATIENT
  Age: 785 Month
  Sex: Male
  Weight: 72.727 kg

DRUGS (3)
  1. ANDROGEL [Suspect]
     Dosage: DAILY DOSE: 5 MILLIGRAM(S)
     Route: 062
  2. ANDROGEL [Suspect]
     Indication: TESTICULAR FAILURE
     Dosage: DAILY DOSE: 10 MILLIGRAM(S)
     Route: 062
     Dates: start: 20090101
  3. XANAX [Concomitant]
     Indication: SLEEP DISORDER
     Dosage: DAILY DOSE:  UNKNOWN, HALF OF 0.25 MG FOR SEVERAL YEARS
     Route: 065

REACTIONS (1)
  - PITUITARY HAEMORRHAGE [None]
